FAERS Safety Report 13599782 (Version 3)
Quarter: 2018Q1

REPORT INFORMATION
  Report Type: Report from Study
  Country: US (occurrence: US)
  Receive Date: 20170601
  Receipt Date: 20180105
  Transmission Date: 20180508
  Serious: Yes (Death, Hospitalization, Other)
  Sender: FDA-Public Use
  Company Number: PHHY2015US126642

PATIENT
  Age: 89 Year
  Sex: Male
  Weight: 56.25 kg

DRUGS (1)
  1. PROMACTA [Suspect]
     Active Substance: ELTROMBOPAG OLAMINE
     Indication: THROMBOCYTOPENIC PURPURA
     Dosage: 12.5 MG, QD
     Route: 048
     Dates: start: 20160801

REACTIONS (6)
  - Malaise [Recovered/Resolved]
  - Pneumonia [Unknown]
  - Dementia [Unknown]
  - White blood cell count decreased [Recovered/Resolved]
  - Urinary tract infection [Unknown]
  - Death [Fatal]

NARRATIVE: CASE EVENT DATE: 20170523
